FAERS Safety Report 18101621 (Version 1)
Quarter: 2020Q3

REPORT INFORMATION
  Report Type: Spontaneous
  Country: US (occurrence: US)
  Receive Date: 20200801
  Receipt Date: 20200801
  Transmission Date: 20201103
  Serious: No
  Sender: FDA-Public Use
  Company Number: US-TEVA-2020-US-1809299

PATIENT
  Age: 48 Year
  Sex: Female

DRUGS (2)
  1. TYLENOL TAB 500 MG [Concomitant]
  2. COPAXONE [Suspect]
     Active Substance: GLATIRAMER ACETATE
     Indication: MULTIPLE SCLEROSIS
     Route: 058
     Dates: start: 20140725

REACTIONS (2)
  - Product dose omission issue [Unknown]
  - Injection site reaction [Not Recovered/Not Resolved]
